FAERS Safety Report 8043022-4 (Version None)
Quarter: 2012Q1

REPORT INFORMATION
  Report Type: 
  Country: None (occurrence: None)
  Receive Date: 20120112
  Receipt Date: 20120108
  Transmission Date: 20120608
  Serious: Yes (Other)
  Sender: FDA-Public Use
  Company Number: PHHY2011CH94595

PATIENT
  Sex: Female

DRUGS (1)
  1. FEMARA [Suspect]
     Indication: BREAST CANCER
     Dosage: UNK

REACTIONS (3)
  - NEOPLASM MALIGNANT [None]
  - CHRONIC MYELOID LEUKAEMIA [None]
  - HEPATITIS C [None]
